FAERS Safety Report 4949427-X (Version None)
Quarter: 2006Q1

REPORT INFORMATION
  Report Type: 
  Country: None (occurrence: None)
  Receive Date: 20060315
  Receipt Date: 20060302
  Transmission Date: 20060701
  Serious: Yes (Hospitalization, Other)
  Sender: FDA-Public Use
  Company Number: 2006032847

PATIENT
  Sex: Female
  Weight: 78.0187 kg

DRUGS (6)
  1. CELEBREX [Suspect]
     Indication: PAIN
     Dosage: UNKNOWN
     Route: 065
  2. PREDNISONE TAB [Suspect]
     Indication: ILL-DEFINED DISORDER
     Dosage: UNKNOWN
     Route: 065
  3. THYROID TAB [Concomitant]
  4. VALSARTAN [Concomitant]
  5. ZOLOFT [Concomitant]
  6. NEURONTIN [Concomitant]

REACTIONS (10)
  - BLOOD IRON DECREASED [None]
  - BLOOD POTASSIUM DECREASED [None]
  - DIVERTICULITIS [None]
  - DRUG INEFFECTIVE [None]
  - GASTROOESOPHAGEAL REFLUX DISEASE [None]
  - MULTIPLE MYELOMA [None]
  - ORAL INTAKE REDUCED [None]
  - THROMBOSIS [None]
  - WEIGHT DECREASED [None]
  - WEIGHT INCREASED [None]
